FAERS Safety Report 8935111 (Version 1)
Quarter: 2012Q4

REPORT INFORMATION
  Report Type: 
  Country: US (occurrence: US)
  Receive Date: 20121129
  Receipt Date: 20121129
  Transmission Date: 20130627
  Serious: No
  Sender: FDA-Public Use
  Company Number: US-B.I. PHARMACEUTICALS,INC./RIDGEFIELD-2012-BP-27479BP

PATIENT
  Sex: Female
  Weight: 101 kg

DRUGS (1)
  1. ATROVENT [Suspect]
     Indication: CHRONIC OBSTRUCTIVE PULMONARY DISEASE
     Dosage: 8 puf
     Route: 055
     Dates: start: 1979

REACTIONS (7)
  - Total lung capacity decreased [Not Recovered/Not Resolved]
  - Asthenia [Not Recovered/Not Resolved]
  - Dyspnoea [Not Recovered/Not Resolved]
  - Pain in extremity [Recovered/Resolved]
  - Blood glucose abnormal [Recovered/Resolved]
  - Fluid retention [Recovered/Resolved]
  - Lung disorder [Recovered/Resolved]
